FAERS Safety Report 18302054 (Version 3)
Quarter: 2020Q4

REPORT INFORMATION
  Report Type: Report from Study
  Country: CA (occurrence: CA)
  Receive Date: 20200923
  Receipt Date: 20201007
  Transmission Date: 20210113
  Serious: Yes (Life-Threatening)
  Sender: FDA-Public Use
  Company Number: CA-SAMSUNG BIOEPIS-SB-2020-25949

PATIENT
  Sex: Female
  Weight: 84 kg

DRUGS (2)
  1. RENFLEXIS [Suspect]
     Active Substance: INFLIXIMAB-ABDA
     Indication: CROHN^S DISEASE
     Route: 042
     Dates: start: 20200427
  2. RENFLEXIS [Suspect]
     Active Substance: INFLIXIMAB-ABDA
     Route: 042
     Dates: start: 20200915

REACTIONS (7)
  - Rash erythematous [Recovering/Resolving]
  - Palpitations [Recovering/Resolving]
  - Vomiting [Recovering/Resolving]
  - Erythema [Recovering/Resolving]
  - Nausea [Recovering/Resolving]
  - Drug specific antibody present [Unknown]
  - Product use issue [Unknown]
